FAERS Safety Report 5338786-4 (Version None)
Quarter: 2007Q2

REPORT INFORMATION
  Report Type: 
  Country: None (occurrence: None)
  Receive Date: 20070328
  Receipt Date: 20060403
  Transmission Date: 20071010
  Serious: Yes (Other)
  Sender: FDA-Public Use
  Company Number: K200600430

PATIENT
  Age: 54 Year
  Sex: Female
  Weight: 74.8 kg

DRUGS (8)
  1. ALTACE [Suspect]
     Indication: HYPERTENSION
     Dosage: 5 MG, QD, ORAL
     Route: 048
     Dates: start: 20040101, end: 20040101
  2. CELEBREX [Concomitant]
  3. MULTIVITAMIN ^LAPPE^ (VITAMINS NOS) TABLET, 1 TABLET [Concomitant]
  4. ZINC (ZINC) 50 MG [Concomitant]
  5. POTASSIUM (POTASSIUM) 99 MG [Concomitant]
  6. ECHINACEA ^RATIOPHARM^ (ECHINACEA PURPUREA EXTRACT) [Concomitant]
  7. ^AMINO-MAX^ TABLET, 3 TABLET [Concomitant]
  8. FISH OIL (FISH OIL), 1 TABLET [Concomitant]

REACTIONS (3)
  - ANGIOEDEMA [None]
  - DYSPNOEA [None]
  - HYPERSENSITIVITY [None]
